FAERS Safety Report 10366546 (Version 1)
Quarter: 2014Q3

REPORT INFORMATION
  Report Type: Spontaneous
  Country: US (occurrence: US)
  Receive Date: 20140806
  Receipt Date: 20140806
  Transmission Date: 20150326
  Serious: Yes (Other)
  Sender: FDA-Public Use
  Company Number: US-PFIZER INC-2014219052

PATIENT
  Age: 61 Year
  Sex: Female
  Weight: 66.21 kg

DRUGS (1)
  1. DILANTIN [Suspect]
     Active Substance: PHENYTOIN
     Indication: CONVULSION
     Dosage: 100 MG, 3X/DAY
     Route: 048
     Dates: start: 1967

REACTIONS (1)
  - Diabetes mellitus [Unknown]

NARRATIVE: CASE EVENT DATE: 2001
